FAERS Safety Report 14689916 (Version 5)
Quarter: 2020Q2

REPORT INFORMATION
  Report Type: Spontaneous
  Country: AT (occurrence: AT)
  Receive Date: 20180328
  Receipt Date: 20200506
  Transmission Date: 20200713
  Serious: Yes (Hospitalization)
  Sender: FDA-Public Use
  Company Number: AT-CELGENEUS-AUT-20180305808

PATIENT
  Age: 73 Year
  Sex: Male
  Weight: 78 kg

DRUGS (23)
  1. CONCOR [Concomitant]
     Active Substance: BISOPROLOL FUMARATE
     Indication: ATRIAL FIBRILLATION
     Dosage: 5
     Route: 048
     Dates: start: 20180109, end: 20180119
  2. ZOLDEM [Concomitant]
     Active Substance: ZOLPIDEM TARTRATE
     Indication: SLEEP DISORDER
     Route: 048
     Dates: start: 20180216, end: 20180424
  3. PANTOLOC [Concomitant]
     Active Substance: PANTOPRAZOLE SODIUM
     Indication: PROPHYLAXIS
     Dosage: 40 MILLIGRAM
     Route: 048
     Dates: start: 20180113
  4. METFORMIN [Concomitant]
     Active Substance: METFORMIN HYDROCHLORIDE
     Indication: DIABETES MELLITUS
     Dosage: 1000 MILLIGRAM
     Route: 048
     Dates: start: 20180112
  5. ONDASAN [Concomitant]
     Active Substance: ONDANSETRON HYDROCHLORIDE
     Indication: PROPHYLAXIS OF NAUSEA AND VOMITING
     Route: 048
     Dates: start: 20180322
  6. FASTURTEC [Concomitant]
     Active Substance: RASBURICASE
     Indication: PROPHYLAXIS
     Route: 065
     Dates: start: 20180216, end: 20180217
  7. ALLOPURINOL. [Concomitant]
     Active Substance: ALLOPURINOL
     Indication: PROPHYLAXIS
     Route: 065
     Dates: start: 20180122, end: 20180128
  8. ZARZIO [Concomitant]
     Active Substance: FILGRASTIM
     Indication: PROPHYLAXIS
     Dosage: 48MIO/0.5ML
     Route: 058
     Dates: start: 20180308, end: 20180320
  9. AZACITIDINE INJECTABLE [Suspect]
     Active Substance: AZACITIDINE
     Indication: ACUTE MYELOID LEUKAEMIA
     Dosage: 75 MILLIGRAM/SQ. METER
     Route: 058
     Dates: start: 20180122
  10. VENETOCLAX (VERUM) [Concomitant]
     Dosage: 400 MILLIGRAM
     Route: 048
     Dates: start: 20180322
  11. CONCOR [Concomitant]
     Active Substance: BISOPROLOL FUMARATE
     Dosage: 2.5 MILLIGRAM
     Route: 048
     Dates: start: 20180120
  12. ZOLDEM [Concomitant]
     Active Substance: ZOLPIDEM TARTRATE
     Route: 048
     Dates: start: 20180519
  13. OTIDORON [Concomitant]
     Indication: EAR DISCOMFORT
     Route: 061
     Dates: start: 20180319, end: 20180419
  14. ZARZIO [Concomitant]
     Active Substance: FILGRASTIM
     Dosage: 48MIO/0.5ML
     Route: 058
     Dates: start: 20180323
  15. VENETOCLAX (VERUM) [Concomitant]
     Indication: ACUTE MYELOID LEUKAEMIA
     Dosage: 100 MILLIGRAM
     Route: 048
     Dates: start: 20180122, end: 20180122
  16. ZARZIO [Concomitant]
     Active Substance: FILGRASTIM
     Indication: ANAEMIA
     Dosage: 48 IU (INTERNATIONAL UNIT)
     Route: 058
     Dates: start: 20180219, end: 20180220
  17. ALLOPURINOL. [Concomitant]
     Active Substance: ALLOPURINOL
     Route: 065
     Dates: start: 20180320
  18. MEXALEN [Concomitant]
     Active Substance: ACETAMINOPHEN
     Indication: PAIN PROPHYLAXIS
     Route: 048
     Dates: start: 20180319, end: 20180503
  19. VENETOCLAX (VERUM) [Concomitant]
     Dosage: 200 MILLIGRAM
     Route: 048
     Dates: start: 20180123, end: 20180123
  20. VENETOCLAX (VERUM) [Concomitant]
     Dosage: 400 MILLIGRAM
     Route: 048
     Dates: start: 20180124, end: 20180318
  21. SPIROBENE [Concomitant]
     Active Substance: SPIRONOLACTONE
     Indication: DYSPNOEA
     Dosage: 50 MILLIGRAM
     Route: 048
     Dates: start: 20180110
  22. ONDASAN [Concomitant]
     Active Substance: ONDANSETRON HYDROCHLORIDE
     Indication: VOMITING
     Route: 041
     Dates: start: 20180122
  23. GLANDOMED [Concomitant]
     Indication: PROPHYLAXIS
     Route: 048
     Dates: start: 20180113

REACTIONS (2)
  - Anaemia [Recovered/Resolved]
  - Congestive hepatopathy [Recovered/Resolved]

NARRATIVE: CASE EVENT DATE: 20180308
